FAERS Safety Report 22098931 (Version 1)
Quarter: 2023Q1

REPORT INFORMATION
  Report Type: Spontaneous
  Country: US (occurrence: None)
  Receive Date: 20230315
  Receipt Date: 20230315
  Transmission Date: 20230417
  Serious: Yes (Hospitalization, Other)
  Sender: FDA-Public Use
  Company Number: None

PATIENT
  Age: 59 Year
  Sex: Male
  Weight: 96 kg

DRUGS (1)
  1. SULFUR HEXAFLUORIDE [Suspect]
     Active Substance: SULFUR HEXAFLUORIDE

REACTIONS (8)
  - Generalised tonic-clonic seizure [None]
  - Hyperhidrosis [None]
  - Agitation [None]
  - Restlessness [None]
  - Hypotension [None]
  - Cyanosis [None]
  - Hypersensitivity [None]
  - Acute myocardial infarction [None]

NARRATIVE: CASE EVENT DATE: 20220525
